FAERS Safety Report 8934296 (Version 2)
Quarter: 2013Q1

REPORT INFORMATION
  Report Type: Spontaneous
  Country: US (occurrence: US)
  Receive Date: 20121129
  Receipt Date: 20130124
  Transmission Date: 20140127
  Serious: No
  Sender: FDA-Public Use
  Company Number: US-PFIZER INC-2012297988

PATIENT
  Age: 65 Year
  Sex: Male
  Weight: 91.4 kg

DRUGS (14)
  1. SUTENT [Suspect]
     Indication: METASTATIC RENAL CELL CARCINOMA
     Dosage: 25 MG, 1X/DAY, 2 WEEKS ON/1 WEEK OFF
     Route: 048
     Dates: start: 201204
  2. AMLODIPINE BESYLATE [Concomitant]
     Dosage: 10 MG, 1X/DAY (QAM)
     Route: 048
  3. ASCORBIC ACID [Concomitant]
     Dosage: 1000 MG, 1X/DAY (QNOON)
     Route: 048
  4. ASPIRIN [Concomitant]
     Dosage: 81 MG, 1X/DAY (QAM)
     Route: 048
  5. FERROUS SULFATE [Concomitant]
     Dosage: 325 MG, 1X/DAY (Q NOON)
     Route: 048
  6. GLUC HCL/ CSA/ COLL HY/ HYALUR AC [Concomitant]
     Dosage: UNK, 1X/DAY (QNOON)
     Route: 048
  7. HYDROCHLOROTHIAZIDE [Concomitant]
     Dosage: 25 MG, 1X/DAY (QAM)
     Route: 048
  8. METOPROLOL SUCCINATE [Concomitant]
     Dosage: 50 MG, 1X/DAY (25 MG 2 TAB QAM)
     Route: 048
  9. MULTIVITAMINS [Concomitant]
     Dosage: 1 DF (1 TABLET), 1X/DAY (QNOON)
     Route: 048
  10. PRILOSEC [Concomitant]
     Dosage: 20 MG, 1X/DAY (QAM)
     Route: 048
  11. POTASSIUM CHLORIDE [Concomitant]
     Dosage: 20 MEQ (2 TABLETS OF 10 MEQ), QB
     Route: 048
  12. PRAVASTATIN SODIUM [Concomitant]
     Dosage: 20 MG, 1X/DAY (QHS)
     Route: 048
  13. TAMSULOSIN HCL [Concomitant]
     Dosage: 0.4 MG, 1X/DAY (QHS)
     Route: 048
  14. ZINC [Concomitant]
     Dosage: 50 MG, 1X/DAY (QNOON)
     Route: 048

REACTIONS (1)
  - Skin exfoliation [Recovered/Resolved]
